FAERS Safety Report 5036904-9 (Version None)
Quarter: 2006Q2

REPORT INFORMATION
  Report Type: 
  Country: None (occurrence: None)
  Receive Date: 20060626
  Receipt Date: 20060616
  Transmission Date: 20061013
  Serious: Yes (Life-Threatening, Hospitalization)
  Sender: FDA-Public Use
  Company Number: DK-2006-013911

PATIENT
  Age: 53 Year
  Sex: Male

DRUGS (1)
  1. ULTRAVIST 370 [Suspect]
     Indication: COMPUTERISED TOMOGRAM
     Dosage: 90 ML, 1 DOSE, INTRAVENOUS
     Route: 042

REACTIONS (3)
  - ANAPHYLACTIC SHOCK [None]
  - ERYTHEMA [None]
  - FEELING HOT [None]
